FAERS Safety Report 10481410 (Version 3)
Quarter: 2016Q2

REPORT INFORMATION
  Report Type: Spontaneous
  Country: US (occurrence: US)
  Receive Date: 20140929
  Receipt Date: 20160411
  Transmission Date: 20160815
  Serious: No
  Sender: FDA-Public Use
  Company Number: US-PFIZER INC-2014265872

PATIENT
  Age: 63 Year
  Sex: Male
  Weight: 97.51 kg

DRUGS (4)
  1. LYRICA [Suspect]
     Active Substance: PREGABALIN
     Dosage: 125 MG, 2X/DAY
     Dates: start: 2014
  2. LYRICA [Suspect]
     Active Substance: PREGABALIN
     Indication: NEURALGIA
     Dosage: 50 MG, UNK
  3. LYRICA [Suspect]
     Active Substance: PREGABALIN
     Dosage: 400-600MG
  4. LYRICA [Suspect]
     Active Substance: PREGABALIN
     Dosage: 75 MG, UNK

REACTIONS (7)
  - Neck mass [Unknown]
  - Gait disturbance [Unknown]
  - Drug ineffective [Unknown]
  - Muscle tightness [Unknown]
  - Hypokinesia [Unknown]
  - Headache [Unknown]
  - Pain [Unknown]
